FAERS Safety Report 7880297-6 (Version None)
Quarter: 2011Q4

REPORT INFORMATION
  Report Type: 
  Country: None (occurrence: None)
  Receive Date: 20111101
  Receipt Date: 20111027
  Transmission Date: 20120403
  Serious: No
  Sender: FDA-Public Use
  Company Number: US-PFIZER INC-2011263247

PATIENT
  Sex: Female

DRUGS (1)
  1. PREMARIN [Suspect]
     Indication: MENOPAUSE
     Dosage: 0.625 MG TABLET ONCE DAILY
     Route: 048

REACTIONS (1)
  - DRUG WITHDRAWAL SYNDROME [None]
